FAERS Safety Report 5488262-3 (Version None)
Quarter: 2007Q4

REPORT INFORMATION
  Report Type: 
  Country: None (occurrence: None)
  Receive Date: 20071005
  Receipt Date: 20070705
  Transmission Date: 20080405
  Serious: No
  Sender: FDA-Public Use
  Company Number: PHEH2007US09603

PATIENT
  Age: 64 Year
  Sex: Male

DRUGS (2)
  1. TEKTURNA [Suspect]
     Indication: HYPERTENSION
     Dosage: 150 MG, BID, ORAL;  300 MG, QD, ORAL
     Route: 048
     Dates: start: 20070501, end: 20070702
  2. TEKTURNA [Suspect]
     Indication: HYPERTENSION
     Dosage: 150 MG, BID, ORAL;  300 MG, QD, ORAL
     Route: 048
     Dates: start: 20070703

REACTIONS (4)
  - BLOOD PRESSURE SYSTOLIC INCREASED [None]
  - FEELING ABNORMAL [None]
  - INFLUENZA LIKE ILLNESS [None]
  - NAUSEA [None]
